FAERS Safety Report 4850830-7 (Version None)
Quarter: 2005Q4

REPORT INFORMATION
  Report Type: 
  Country: None (occurrence: None)
  Receive Date: 20051208
  Receipt Date: 20051130
  Transmission Date: 20060501
  Serious: Yes (Other)
  Sender: FDA-Public Use
  Company Number: 2005-09-0538

PATIENT
  Age: 59 Year
  Sex: Male
  Weight: 55 kg

DRUGS (8)
  1. INTRON A [Suspect]
     Indication: HEPATITIS C
     Dosage: 6 MIU QD-BIW; INTRAMUSCULAR
     Route: 030
     Dates: start: 20040206, end: 20040220
  2. INTRON A [Suspect]
     Indication: HEPATITIS C
     Dosage: 6 MIU QD-BIW; INTRAMUSCULAR
     Route: 030
     Dates: start: 20040223, end: 20041029
  3. INTRON A [Suspect]
     Indication: HEPATITIS C
     Dosage: 6 MIU QD-BIW; INTRAMUSCULAR
     Route: 030
     Dates: start: 20041101, end: 20041224
  4. REBETOL [Suspect]
     Indication: HEPATITIS C
     Dosage: 600-400 MG; ORAL
     Route: 048
     Dates: start: 20040206, end: 20040610
  5. REBETOL [Suspect]
     Indication: HEPATITIS C
     Dosage: 600-400 MG; ORAL
     Route: 048
     Dates: start: 20040206, end: 20040805
  6. REBETOL [Suspect]
     Indication: HEPATITIS C
     Dosage: 600-400 MG; ORAL
     Route: 048
     Dates: start: 20040611, end: 20040805
  7. ZANTAC [Concomitant]
  8. SELBEX CAPSULES [Concomitant]

REACTIONS (4)
  - ANAEMIA [None]
  - CONDITION AGGRAVATED [None]
  - RHEUMATOID ARTHRITIS [None]
  - SWELLING [None]
